FAERS Safety Report 19002056 (Version 1)
Quarter: 2021Q1

REPORT INFORMATION
  Report Type: Spontaneous
  Country: US (occurrence: US)
  Receive Date: 20210311
  Receipt Date: 20210311
  Transmission Date: 20210420
  Serious: Yes (Other)
  Sender: FDA-Public Use
  Company Number: None

PATIENT
  Age: 56 Year
  Sex: Female
  Weight: 92.17 kg

DRUGS (1)
  1. LEVOTHYROXINE 137MCG [Suspect]
     Active Substance: LEVOTHYROXINE
     Indication: BASEDOW^S DISEASE
     Route: 048
     Dates: start: 20080101

REACTIONS (3)
  - Drug ineffective [None]
  - Product substitution issue [None]
  - Therapeutic response changed [None]
